FAERS Safety Report 9924687 (Version 2)
Quarter: 2014Q1

REPORT INFORMATION
  Report Type: Spontaneous
  Country: IT (occurrence: None)
  Receive Date: 20140220
  Receipt Date: 20140304
  Transmission Date: 20141002
  Serious: Yes (Other)
  Sender: FDA-Public Use
  Company Number: FK201400549

PATIENT
  Age: 63 Year
  Sex: Female
  Weight: 55 kg

DRUGS (1)
  1. PACLITAXEL [Suspect]
     Indication: PRODUCT USED FOR UNKNOWN INDICATION
     Dosage: 80 MG, TOTAL INTRAVENOUS (NOT SPECIFIED)
     Route: 042
     Dates: start: 20140121, end: 20140121

REACTIONS (3)
  - Dysphagia [None]
  - Ankyloglossia acquired [None]
  - Infusion related reaction [None]
